FAERS Safety Report 7359047-8 (Version None)
Quarter: 2011Q1

REPORT INFORMATION
  Report Type: 
  Country: None (occurrence: None)
  Receive Date: 20110317
  Receipt Date: 20110315
  Transmission Date: 20110831
  Serious: Yes (Other)
  Sender: FDA-Public Use
  Company Number: GB-PFIZER INC-2011057460

PATIENT
  Sex: Female

DRUGS (2)
  1. CHAMPIX [Suspect]
     Dosage: 0.5 MG, UNK
  2. CHAMPIX [Suspect]
     Dosage: 1 MG, 2X/DAY

REACTIONS (1)
  - LOWER RESPIRATORY TRACT INFECTION [None]
